FAERS Safety Report 4954057-X (Version None)
Quarter: 2006Q1

REPORT INFORMATION
  Report Type: 
  Country: None (occurrence: None)
  Receive Date: 20060321
  Receipt Date: 20060310
  Transmission Date: 20060701
  Serious: Yes (Hospitalization)
  Sender: FDA-Public Use
  Company Number: 2006-139622-NL

PATIENT
  Age: 73 Year
  Sex: Female

DRUGS (11)
  1. MIRTAZAPINE [Suspect]
     Indication: MAJOR DEPRESSION
     Dosage: DF
     Route: 048
     Dates: start: 20051201, end: 20060201
  2. POTASSIUM SULFATE [Suspect]
     Indication: MAJOR DEPRESSION
     Dosage: 660 MG
     Dates: start: 20051201, end: 20060201
  3. ESCITALOPRAM OXALATE [Suspect]
     Indication: MAJOR DEPRESSION
     Dosage: 20 MG
     Route: 048
     Dates: start: 20051201, end: 20060201
  4. VALPROATE SODIUM [Suspect]
     Indication: MAJOR DEPRESSION
     Dosage: DF
     Route: 048
     Dates: start: 20051201, end: 20060201
  5. QUETIAPINE FUMARATE [Suspect]
     Indication: MAJOR DEPRESSION
     Dosage: 300 MG
     Route: 048
     Dates: start: 20051201, end: 20060201
  6. METOPROLOL TARTRATE [Concomitant]
  7. ACETYLSALICYLIC ACID SRT [Concomitant]
  8. LORAZEPAM [Concomitant]
  9. PRAVASTATIN [Concomitant]
  10. CALCIMAGON-D3 [Concomitant]
  11. ALENDRONATE SODIUM [Concomitant]

REACTIONS (10)
  - APATHY [None]
  - CONFUSIONAL STATE [None]
  - DRUG INTERACTION [None]
  - FLUID INTAKE REDUCED [None]
  - HEADACHE [None]
  - MYDRIASIS [None]
  - ORAL INTAKE REDUCED [None]
  - SEROTONIN SYNDROME [None]
  - THERAPEUTIC AGENT TOXICITY [None]
  - TREMOR [None]
